FAERS Safety Report 6236109-X (Version None)
Quarter: 2009Q2

REPORT INFORMATION
  Report Type: 
  Country: None (occurrence: None)
  Receive Date: 20090616
  Receipt Date: 20090611
  Transmission Date: 20091009
  Serious: Yes (Hospitalization)
  Sender: FDA-Public Use
  Company Number: A0763969A

PATIENT
  Age: 27 Year
  Sex: Male

DRUGS (2)
  1. ASPIRIN [Suspect]
     Indication: DRUG USE FOR UNKNOWN INDICATION
     Dosage: 650 MG/ SIX TIMES PER DAY/ ORAL
     Route: 048
     Dates: start: 20080409
  2. ASPIRIN [Suspect]
     Indication: DRUG USE FOR UNKNOWN INDICATION
     Dosage: 650 MG/ SIX TIMES PER DAY/ ORAL
     Route: 048
     Dates: start: 20080409

REACTIONS (13)
  - ANXIETY [None]
  - CULTURE POSITIVE [None]
  - DIZZINESS [None]
  - FEAR [None]
  - HAEMARTHROSIS [None]
  - ILL-DEFINED DISORDER [None]
  - JOINT EFFUSION [None]
  - MALAISE [None]
  - MULTIPLE INJURIES [None]
  - PAIN [None]
  - PYREXIA [None]
  - SHOCK [None]
  - STAPHYLOCOCCAL INFECTION [None]
